FAERS Safety Report 4429882-4 (Version None)
Quarter: 2004Q3

REPORT INFORMATION
  Report Type: 
  Country: None (occurrence: None)
  Receive Date: 20040817
  Receipt Date: 20040804
  Transmission Date: 20050211
  Serious: Yes (Hospitalization, Other)
  Sender: FDA-Public Use
  Company Number: 2004053135

PATIENT
  Sex: Male
  Weight: 90.7194 kg

DRUGS (4)
  1. NORVASC [Suspect]
     Indication: BLOOD PRESSURE
     Dosage: 10 MG (10 MG, 1 IN 1D)
  2. VALSARTAN (VALSARTAN) [Concomitant]
  3. EZETIMIBE (EZETIMIBE) [Concomitant]
  4. CELECOXIB (CELECOXIB) [Concomitant]

REACTIONS (5)
  - GOUT [None]
  - LIVER DISORDER [None]
  - NEPHROLITHIASIS [None]
  - POST PROCEDURAL URINE LEAK [None]
  - RENAL DISORDER [None]
